FAERS Safety Report 17223098 (Version 1)
Quarter: 2020Q1

REPORT INFORMATION
  Report Type: Other
  Country: PT (occurrence: PT)
  Receive Date: 20200102
  Receipt Date: 20200102
  Transmission Date: 20200409
  Serious: Yes (Other)
  Sender: FDA-Public Use
  Company Number: PT-HEALTHCARE PHARMACEUTICALS LTD.-2078410

PATIENT
  Age: 42 Year
  Sex: Male

DRUGS (1)
  1. DOXORUBICIN HYDROCHLORIDE. [Suspect]
     Active Substance: DOXORUBICIN HYDROCHLORIDE
     Indication: KAPOSI^S SARCOMA
     Route: 065

REACTIONS (1)
  - Hepatotoxicity [Recovered/Resolved]
